FAERS Safety Report 25665151 (Version 1)
Quarter: 2025Q3

REPORT INFORMATION
  Report Type: Spontaneous
  Country: US (occurrence: US)
  Receive Date: 20250811
  Receipt Date: 20250811
  Transmission Date: 20251020
  Serious: No
  Sender: ALEXION PHARMACEUTICALS
  Company Number: US-PROCTER+GAMBLE-PH25009996

PATIENT
  Age: 82 Year
  Sex: Female

DRUGS (3)
  1. PRILOSEC OTC [Suspect]
     Active Substance: OMEPRAZOLE MAGNESIUM
     Indication: Dyspepsia
     Dosage: 1 TABLET, 1 /DAY (STARTED LAST WEEK)
     Dates: start: 2025, end: 2025
  2. PRILOSEC OTC [Suspect]
     Active Substance: OMEPRAZOLE MAGNESIUM
     Dosage: 2 TABLET, 1 /DAY
     Dates: start: 2025, end: 2025
  3. PRILOSEC OTC [Suspect]
     Active Substance: OMEPRAZOLE MAGNESIUM
     Dosage: 1 TABLET, 1 /DAY
     Dates: start: 20250706, end: 20250706

REACTIONS (8)
  - Diarrhoea [Not Recovered/Not Resolved]
  - Abdominal pain upper [Recovered/Resolved]
  - Drug ineffective [Unknown]
  - Therapeutic product effect decreased [Unknown]
  - Off label use [Unknown]
  - Prescribed overdose [Unknown]
  - Inappropriate schedule of product administration [Unknown]
  - Product use complaint [Unknown]

NARRATIVE: CASE EVENT DATE: 20250101
